FAERS Safety Report 12091812 (Version 2)
Quarter: 2016Q1

REPORT INFORMATION
  Report Type: Spontaneous
  Country: AU (occurrence: AU)
  Receive Date: 20160218
  Receipt Date: 20160224
  Transmission Date: 20160526
  Serious: Yes (Hospitalization, Other)
  Sender: FDA-Public Use
  Company Number: AU-009507513-1602AUS007344

PATIENT
  Age: 22 Year
  Sex: Male
  Weight: 87 kg

DRUGS (4)
  1. PEMBROLIZUMAB. [Suspect]
     Active Substance: PEMBROLIZUMAB
     Indication: METASTATIC MALIGNANT MELANOMA
     Dosage: 188 MG, QD
     Route: 042
     Dates: start: 20151119
  2. PEMBROLIZUMAB. [Suspect]
     Active Substance: PEMBROLIZUMAB
     Dosage: 188 MG, QD
     Route: 042
     Dates: start: 20151211
  3. PEMBROLIZUMAB. [Suspect]
     Active Substance: PEMBROLIZUMAB
     Dosage: 188 MG, QD
     Route: 042
     Dates: start: 20151231
  4. PEMBROLIZUMAB. [Suspect]
     Active Substance: PEMBROLIZUMAB
     Dosage: 188 MG, QD
     Route: 042
     Dates: start: 20160129

REACTIONS (9)
  - Thyroxine free increased [Not Recovered/Not Resolved]
  - Glomerular filtration rate decreased [Unknown]
  - Blood phosphorus increased [Unknown]
  - Blood luteinising hormone increased [Unknown]
  - Blood sodium decreased [Unknown]
  - Blood thyroid stimulating hormone decreased [Not Recovered/Not Resolved]
  - Blood chloride decreased [Unknown]
  - Diabetic ketoacidosis [Recovered/Resolved]
  - Blood bicarbonate decreased [Unknown]

NARRATIVE: CASE EVENT DATE: 20160120
